FAERS Safety Report 5640038-X (Version None)
Quarter: 2008Q1

REPORT INFORMATION
  Report Type: 
  Country: None (occurrence: None)
  Receive Date: 20080226
  Receipt Date: 20080226
  Transmission Date: 20080703
  Serious: Yes (Hospitalization)
  Sender: FDA-Public Use
  Company Number: None

PATIENT
  Age: 84 Year
  Sex: Male
  Weight: 105.7 kg

DRUGS (1)
  1. TRAVOPROST [Suspect]
     Indication: GLAUCOMA
     Dosage: 1DROPS EVERYDAY EYE
     Dates: start: 20040505, end: 20040620

REACTIONS (4)
  - ERYTHEMA OF EYELID [None]
  - EYE IRRITATION [None]
  - EYE SWELLING [None]
  - EYELID OEDEMA [None]
